FAERS Safety Report 7469862-8 (Version None)
Quarter: 2011Q2

REPORT INFORMATION
  Report Type: 
  Country: None (occurrence: None)
  Receive Date: 20110510
  Receipt Date: 20110422
  Transmission Date: 20111010
  Serious: No
  Sender: FDA-Public Use
  Company Number: US-B.I. PHARMACEUTICALS,INC./RIDGEFIELD-2011-BP-05966BP

PATIENT
  Age: 77 Year
  Sex: Male

DRUGS (7)
  1. AMIODARONE [Concomitant]
     Indication: CARDIAC DISORDER
     Dosage: 200 MG
     Route: 048
     Dates: start: 20110101
  2. PRADAXA [Suspect]
     Indication: ATRIAL FIBRILLATION
     Dosage: 300 MG
     Route: 048
     Dates: start: 20110208
  3. OMEPRAZOLE [Concomitant]
     Dosage: 20 MG
  4. ACEBUTOLOL [Concomitant]
     Dosage: 200 MG
  5. SIMVASTATIN [Concomitant]
  6. ACETAMINOPHEN [Concomitant]
  7. PLAVIX [Concomitant]
     Indication: CARDIAC DISORDER
     Dosage: 75 MG
     Route: 048
     Dates: start: 20090101

REACTIONS (4)
  - EPISTAXIS [None]
  - DIZZINESS [None]
  - CHEST DISCOMFORT [None]
  - DYSPEPSIA [None]
